FAERS Safety Report 7045381-8 (Version None)
Quarter: 2010Q4

REPORT INFORMATION
  Report Type: 
  Country: None (occurrence: None)
  Receive Date: 20101014
  Receipt Date: 20100830
  Transmission Date: 20110411
  Serious: No
  Sender: FDA-Public Use
  Company Number: US-ALLERGAN-1011182US

PATIENT
  Age: 20 Year
  Sex: Female

DRUGS (1)
  1. LATISSE [Suspect]
     Indication: GROWTH OF EYELASHES
     Dosage: 1 GTT, QHS
     Route: 061
     Dates: end: 20100829

REACTIONS (3)
  - APPLICATION SITE PRURITUS [None]
  - HAIR DISORDER [None]
  - MADAROSIS [None]
